FAERS Safety Report 23779496 (Version 1)
Quarter: 2024Q2

REPORT INFORMATION
  Report Type: Spontaneous
  Country: US (occurrence: US)
  Receive Date: 20240424
  Receipt Date: 20240424
  Transmission Date: 20240716
  Serious: No
  Sender: FDA-Public Use
  Company Number: US-SA-SAC20240423000075

PATIENT
  Age: 24 Year
  Sex: Male

DRUGS (4)
  1. DUPIXENT [Suspect]
     Active Substance: DUPILUMAB
     Indication: Ichthyosis
     Dosage: 300MG,QOW
     Route: 058
     Dates: start: 202402
  2. DUPIXENT [Suspect]
     Active Substance: DUPILUMAB
     Indication: Hypergammaglobulinaemia
  3. DUPIXENT [Suspect]
     Active Substance: DUPILUMAB
     Indication: Immunodeficiency
  4. COSENTYX [Concomitant]
     Active Substance: SECUKINUMAB
     Dosage: UNK

REACTIONS (2)
  - Skin atrophy [Unknown]
  - Product use in unapproved indication [Unknown]

NARRATIVE: CASE EVENT DATE: 20240101
